FAERS Safety Report 18911901 (Version 2)
Quarter: 2021Q1

REPORT INFORMATION
  Report Type: Spontaneous
  Country: US (occurrence: US)
  Receive Date: 20210219
  Receipt Date: 20210323
  Transmission Date: 20210420
  Serious: No
  Sender: FDA-Public Use
  Company Number: US-JNJFOC-20210211824

PATIENT
  Age: 55 Year
  Sex: Male

DRUGS (1)
  1. MENS ROGAINE EXTRA STRENGTH [Suspect]
     Active Substance: MINOXIDIL
     Indication: ALOPECIA
     Dosage: HALF A CAPFUL
     Route: 061
     Dates: start: 2020

REACTIONS (2)
  - Seborrhoea [Recovered/Resolved]
  - Application site irritation [Recovered/Resolved]

NARRATIVE: CASE EVENT DATE: 202010
